FAERS Safety Report 11491778 (Version 1)
Quarter: 2015Q3

REPORT INFORMATION
  Report Type: Spontaneous
  Country: US (occurrence: None)
  Receive Date: 20150909
  Receipt Date: 20150909
  Transmission Date: 20151125
  Serious: Yes (Life-Threatening, Other)
  Sender: FDA-Public Use
  Company Number: None

PATIENT
  Age: 58 Year
  Sex: Female
  Weight: 145.15 kg

DRUGS (7)
  1. TORADOL [Suspect]
     Active Substance: KETOROLAC TROMETHAMINE
     Indication: FALL
  2. VITAMIN D [Concomitant]
     Active Substance: CHOLECALCIFEROL
  3. DYAZIDE [Concomitant]
     Active Substance: HYDROCHLOROTHIAZIDE\TRIAMTERENE
  4. NSAIDS [Concomitant]
     Active Substance: UNSPECIFIED INGREDIENT
  5. LISINOPRIL. [Concomitant]
     Active Substance: LISINOPRIL
  6. PREMARIN VAGINAL [Concomitant]
     Active Substance: ESTROGENS, CONJUGATED
  7. LIDODERM [Concomitant]
     Active Substance: LIDOCAINE

REACTIONS (6)
  - Confusional state [None]
  - Renal impairment [None]
  - Hyperhidrosis [None]
  - Back pain [None]
  - Dizziness [None]
  - Headache [None]

NARRATIVE: CASE EVENT DATE: 20150804
